FAERS Safety Report 16629458 (Version 5)
Quarter: 2019Q3

REPORT INFORMATION
  Report Type: Report from Study
  Country: JP (occurrence: JP)
  Receive Date: 20190725
  Receipt Date: 20190925
  Transmission Date: 20191004
  Serious: Yes (Death, Hospitalization, Other)
  Sender: FDA-Public Use
  Company Number: JP-BRISTOL-MYERS SQUIBB COMPANY-BMS-2019-013411

PATIENT
  Age: 67 Year
  Sex: Male
  Weight: 57.5 kg

DRUGS (3)
  1. NIVOLUMAB [Suspect]
     Active Substance: NIVOLUMAB
     Indication: RENAL CELL CARCINOMA
     Dosage: 240 MILLIGRAM
     Route: 041
     Dates: start: 20181001
  2. NEXAVAR [Concomitant]
     Active Substance: SORAFENIB
     Indication: PRODUCT USED FOR UNKNOWN INDICATION
     Dosage: UNK
     Route: 065
     Dates: start: 20190123, end: 20190221
  3. YERVOY [Suspect]
     Active Substance: IPILIMUMAB
     Indication: RENAL CELL CARCINOMA
     Dosage: 60 MILLIGRAM
     Route: 041
     Dates: start: 20181001

REACTIONS (5)
  - Malignant neoplasm progression [Fatal]
  - Pneumonia [Recovered/Resolved]
  - Hypopituitarism [Unknown]
  - Hypothyroidism [Recovering/Resolving]
  - Adrenal disorder [Recovering/Resolving]

NARRATIVE: CASE EVENT DATE: 201812
